FAERS Safety Report 9901165 (Version 2)
Quarter: 2014Q3

REPORT INFORMATION
  Report Type: Spontaneous
  Country: US (occurrence: US)
  Receive Date: 20140217
  Receipt Date: 20140811
  Transmission Date: 20150326
  Serious: Yes (Hospitalization, Other)
  Sender: FDA-Public Use
  Company Number: US-009507513-1402USA007303

PATIENT
  Sex: Female
  Weight: 95.69 kg

DRUGS (1)
  1. NUVARING [Suspect]
     Active Substance: ETHINYL ESTRADIOL\ETONOGESTREL
     Indication: CONTRACEPTION
     Dosage: 0.120MG/0.015MG
     Route: 067
     Dates: start: 20121018, end: 201304

REACTIONS (8)
  - Fall [Unknown]
  - Pain [Unknown]
  - Pulmonary embolism [Recovered/Resolved]
  - Contusion [Unknown]
  - White blood cell count abnormal [Unknown]
  - Antithrombin III deficiency [Unknown]
  - Depression [Unknown]
  - Emotional distress [Unknown]

NARRATIVE: CASE EVENT DATE: 201301
